FAERS Safety Report 15655873 (Version 1)
Quarter: 2018Q4

REPORT INFORMATION
  Report Type: Spontaneous
  Country: US (occurrence: US)
  Receive Date: 20181115
  Receipt Date: 20181115
  Transmission Date: 20190205
  Serious: Yes (Disabling, Other)
  Sender: FDA-Public Use
  Company Number: None

PATIENT
  Age: 19 Year
  Sex: Male
  Weight: 78.75 kg

DRUGS (3)
  1. BUTEA SUPERBA [Concomitant]
  2. OMEGA 3 FISH OIL [Concomitant]
     Active Substance: FISH OIL\OMEGA-3 FATTY ACIDS
  3. PROPECIA [Suspect]
     Active Substance: FINASTERIDE
     Indication: ALOPECIA
     Dosage: ?          QUANTITY:1 TABLET(S);?
     Route: 048

REACTIONS (11)
  - Amnesia [None]
  - Erectile dysfunction [None]
  - Penis disorder [None]
  - Feeling abnormal [None]
  - Muscle atrophy [None]
  - Asthenia [None]
  - Hypoaesthesia [None]
  - Libido decreased [None]
  - Cognitive disorder [None]
  - Psychiatric symptom [None]
  - Self esteem decreased [None]

NARRATIVE: CASE EVENT DATE: 20170809
